FAERS Safety Report 6665471-9 (Version None)
Quarter: 2010Q1

REPORT INFORMATION
  Report Type: 
  Country: None (occurrence: None)
  Receive Date: 20100325
  Receipt Date: 20091117
  Transmission Date: 20100710
  Serious: No
  Sender: FDA-Public Use
  Company Number: 2009-00748

PATIENT
  Age: 58 Year
  Sex: Female
  Weight: 79.3795 kg

DRUGS (2)
  1. COLD REMEDY NASAL GEL SWABS [Suspect]
     Dosage: QID, 2 DAYS
     Dates: start: 20091110, end: 20091112
  2. PREVACID [Concomitant]

REACTIONS (1)
  - ANOSMIA [None]
